FAERS Safety Report 8977126 (Version 1)
Quarter: 2012Q4

REPORT INFORMATION
  Report Type: 
  Country: CA (occurrence: CA)
  Receive Date: 20121219
  Receipt Date: 20121219
  Transmission Date: 20130627
  Serious: Yes (Other)
  Sender: FDA-Public Use
  Company Number: PHHY2012CA097373

PATIENT
  Sex: Female

DRUGS (6)
  1. ACLASTA [Suspect]
     Indication: OSTEOPOROSIS POSTMENOPAUSAL
     Dosage: UNK UKN, UNK
     Dates: start: 20111018
  2. ACLASTA [Suspect]
     Dosage: UNK UKN, UNK
     Route: 042
     Dates: start: 20121011
  3. FERROUS SULFATE [Concomitant]
  4. ATORVASTATIN [Concomitant]
  5. COVERSYL                                /BEL/ [Concomitant]
  6. CITALOPRAM [Concomitant]

REACTIONS (4)
  - Gastric mucosal lesion [Unknown]
  - Gastric haemorrhage [Unknown]
  - Malaise [Unknown]
  - Anaemia [Not Recovered/Not Resolved]
